FAERS Safety Report 7829287-X (Version None)
Quarter: 2011Q4

REPORT INFORMATION
  Report Type: 
  Country: None (occurrence: None)
  Receive Date: 20111020
  Receipt Date: 20111011
  Transmission Date: 20120403
  Serious: Yes (Other)
  Sender: FDA-Public Use
  Company Number: JP-ALLERGAN-1113535US

PATIENT
  Sex: Male

DRUGS (1)
  1. BOTOX [Suspect]
     Indication: VIITH NERVE PARALYSIS
     Dosage: UNK
     Route: 030

REACTIONS (4)
  - HYPOTONIA [None]
  - HYPOAESTHESIA ORAL [None]
  - OPHTHALMOPLEGIA [None]
  - MUSCULAR WEAKNESS [None]
